FAERS Safety Report 9196120 (Version 1)
Quarter: 2013Q1

REPORT INFORMATION
  Report Type: Spontaneous
  Country: US (occurrence: None)
  Receive Date: 20120705
  Receipt Date: 20120705
  Transmission Date: 20140127
  Serious: Yes (Hospitalization, Other)
  Sender: FDA-Public Use
  Company Number: US-CYPR-2012-000017

PATIENT
  Age: 56 Year
  Sex: Male
  Weight: 104.33 kg

DRUGS (8)
  1. CLOPIDOGREL [Suspect]
     Indication: ANTIPLATELET THERAPY
     Route: 048
     Dates: start: 20110204, end: 20120301
  2. ASPRIN [Suspect]
     Indication: CORONARY ARTERY DISEASE
     Route: 048
     Dates: start: 20100206
  3. NITROGLYCERIN [Concomitant]
  4. HYZAAR [Concomitant]
  5. PRAVACHOL [Concomitant]
  6. EZETIMIBE [Concomitant]
  7. TRICOR [Concomitant]
  8. RANEXA [Concomitant]

REACTIONS (1)
  - Angina pectoris [None]
